FAERS Safety Report 14371305 (Version 1)
Quarter: 2018Q1

REPORT INFORMATION
  Report Type: Spontaneous
  Country: US (occurrence: US)
  Receive Date: 20180109
  Receipt Date: 20180109
  Transmission Date: 20180509
  Serious: No
  Sender: FDA-Public Use
  Company Number: None

PATIENT
  Age: 40 Year
  Sex: Female

DRUGS (1)
  1. OCTREOTIDE 200MCG/ML MDV 5 ML [Suspect]
     Active Substance: OCTREOTIDE

REACTIONS (2)
  - Malaise [None]
  - Product dosage form issue [None]

NARRATIVE: CASE EVENT DATE: 20180109
